FAERS Safety Report 15329645 (Version 1)
Quarter: 2018Q4

REPORT INFORMATION
  Report Type: Spontaneous
  Country: IL (occurrence: IL)
  Receive Date: 20180829
  Receipt Date: 20180829
  Transmission Date: 20190204
  Serious: Yes (Death)
  Sender: FDA-Public Use
  Company Number: IL-TEVA-2018-IL-946944

PATIENT
  Age: 55 Year
  Sex: Female

DRUGS (7)
  1. RISPERDAL [Concomitant]
     Active Substance: RISPERIDONE
  2. CLONEX (CLONAZEPAM) [Suspect]
     Active Substance: CLONAZEPAM
     Route: 065
  3. LIPITOR [Concomitant]
     Active Substance: ATORVASTATIN CALCIUM
  4. IMUVANE [Concomitant]
  5. DEKINET (BIPERIDEN HYDROCHLORIDE) [Concomitant]
     Active Substance: BIPERIDEN HYDROCHLORIDE
  6. LAMICTAL 150 [Concomitant]
  7. XEPLION 150 [Suspect]
     Active Substance: PALIPERIDONE PALMITATE
     Dates: start: 201711, end: 20180710

REACTIONS (10)
  - Psychomotor skills impaired [Unknown]
  - Mood swings [Unknown]
  - Leukocytosis [Unknown]
  - Dysphagia [Unknown]
  - Hypertonia [Unknown]
  - Adverse event [Unknown]
  - Feeling abnormal [Unknown]
  - Death [Fatal]
  - Dysstasia [Unknown]
  - Blood bilirubin increased [Unknown]

NARRATIVE: CASE EVENT DATE: 20180713
